FAERS Safety Report 5694289-9 (Version None)
Quarter: 2008Q2

REPORT INFORMATION
  Report Type: 
  Country: None (occurrence: None)
  Receive Date: 20080404
  Receipt Date: 20080328
  Transmission Date: 20081010
  Serious: Yes (Other)
  Sender: FDA-Public Use
  Company Number: US-JNJFOC-20080400083

PATIENT
  Age: 69 Year
  Sex: Female

DRUGS (1)
  1. DORIPENEM [Suspect]
     Indication: DRUG USE FOR UNKNOWN INDICATION
     Route: 041

REACTIONS (4)
  - CELLULITIS [None]
  - COMPARTMENT SYNDROME [None]
  - CONVULSION [None]
  - RHABDOMYOLYSIS [None]
